FAERS Safety Report 4528207-3 (Version None)
Quarter: 2004Q4

REPORT INFORMATION
  Report Type: 
  Country: None (occurrence: None)
  Receive Date: 20041215
  Receipt Date: 20041208
  Transmission Date: 20050328
  Serious: Yes (Disabling)
  Sender: FDA-Public Use
  Company Number: US-MERCK-0412USA01066

PATIENT
  Age: 53 Year
  Sex: Male

DRUGS (1)
  1. VYTORIN [Suspect]
     Route: 048
     Dates: start: 20041120, end: 20040101

REACTIONS (3)
  - CONTUSION [None]
  - FLANK PAIN [None]
  - PAIN IN EXTREMITY [None]
